FAERS Safety Report 13644450 (Version 1)
Quarter: 2017Q2

REPORT INFORMATION
  Report Type: Spontaneous
  Country: US (occurrence: US)
  Receive Date: 20170612
  Receipt Date: 20170612
  Transmission Date: 20170830
  Serious: No
  Sender: FDA-Public Use
  Company Number: US-ROCHE-1311079

PATIENT
  Sex: Female

DRUGS (6)
  1. XELODA [Suspect]
     Active Substance: CAPECITABINE
     Indication: NEOPLASM MALIGNANT
  2. XELODA [Suspect]
     Active Substance: CAPECITABINE
     Indication: NEOPLASM MALIGNANT
  3. OXYCODONE [Concomitant]
     Active Substance: OXYCODONE
     Route: 065
  4. OXYCONTIN [Concomitant]
     Active Substance: OXYCODONE HYDROCHLORIDE
     Route: 065
  5. XELODA [Suspect]
     Active Substance: CAPECITABINE
     Indication: BRAIN NEOPLASM MALIGNANT
     Route: 048
     Dates: start: 20131022
  6. XELODA [Suspect]
     Active Substance: CAPECITABINE
     Indication: BREAST CANCER

REACTIONS (1)
  - Diplopia [Not Recovered/Not Resolved]
